FAERS Safety Report 7616952 (Version 12)
Quarter: 2013Q2

REPORT INFORMATION
  Report Type: Report from Study
  Country: DE (occurrence: DE)
  Receive Date: 20101005
  Receipt Date: 20130416
  Transmission Date: 20140414
  Serious: Yes (Hospitalization, Other)
  Sender: FDA-Public Use
  Company Number: DE-BIOGENIDEC-2010BI032501

PATIENT
  Age: 38 Year
  Sex: Female

DRUGS (4)
  1. TYSABRI [Suspect]
     Indication: RELAPSING-REMITTING MULTIPLE SCLEROSIS
     Route: 042
     Dates: start: 20080710, end: 20100827
  2. MODAFINIL [Concomitant]
     Indication: AFFECTIVE DISORDER
     Dates: start: 201004
  3. VENLAFAXIN [Concomitant]
     Indication: AFFECTIVE DISORDER
     Dates: start: 201004
  4. MOVICOL [Concomitant]
     Indication: CONSTIPATION

REACTIONS (2)
  - Progressive multifocal leukoencephalopathy [Recovered/Resolved with Sequelae]
  - Immune reconstitution inflammatory syndrome [Recovered/Resolved with Sequelae]
